FAERS Safety Report 8039891-4 (Version None)
Quarter: 2012Q1

REPORT INFORMATION
  Report Type: 
  Country: None (occurrence: None)
  Receive Date: 20120111
  Receipt Date: 20111221
  Transmission Date: 20120608
  Serious: No
  Sender: FDA-Public Use
  Company Number: US-AMGEN-USASP2011068353

PATIENT
  Age: 78 Year
  Sex: Female
  Weight: 63.492 kg

DRUGS (18)
  1. ENBREL [Suspect]
     Indication: PRODUCT USED FOR UNKNOWN INDICATION
     Dosage: 50 MG, QWK
     Route: 058
  2. VOLTAREN [Concomitant]
     Dosage: 50 MG, UNK
     Route: 048
  3. PREDNISONE TAB [Concomitant]
     Dosage: 2.5 MG, UNK
     Route: 048
  4. PROCHLORPERAZ [Concomitant]
     Dosage: 5 MG, UNK
     Route: 048
  5. PROTONIX [Concomitant]
     Dosage: 40 MG, UNK
     Route: 048
  6. XANAX [Concomitant]
     Dosage: 0.5 MG, UNK
     Route: 048
  7. PLAQUENIL [Concomitant]
     Dosage: 200 MG, UNK
     Route: 048
  8. ASPIRIN [Concomitant]
     Dosage: 81 MG, UNK
     Route: 048
  9. IMITREX [Concomitant]
     Dosage: 25 MG, UNK
     Route: 048
  10. VITAMIN D [Concomitant]
     Dosage: 1000 UNIT, UNK
     Route: 048
  11. BENTYL [Concomitant]
     Dosage: 20 MG, UNK
     Route: 048
  12. NEURONTIN [Concomitant]
     Dosage: 600 MG, UNK
     Route: 048
  13. CALCIUM [Concomitant]
     Dosage: UNK
     Route: 048
  14. FISH OIL [Concomitant]
     Dosage: UNK
     Route: 048
  15. FENTANYL [Concomitant]
     Dosage: 25 MUG, UNK
  16. DEPAKOTE [Concomitant]
     Dosage: 125 MG, UNK
     Route: 048
  17. ESTRADERM [Concomitant]
     Dosage: 0.1 MG, UNK
  18. MULTIVITAMIN                       /00097801/ [Concomitant]
     Dosage: UNK
     Route: 048

REACTIONS (1)
  - URINARY TRACT INFECTION [None]
